FAERS Safety Report 9562524 (Version 1)
Quarter: 2013Q3

REPORT INFORMATION
  Report Type: Spontaneous
  Country: US (occurrence: None)
  Receive Date: 20130926
  Receipt Date: 20130926
  Transmission Date: 20140515
  Serious: No
  Sender: FDA-Public Use
  Company Number: None

PATIENT
  Sex: Female

DRUGS (1)
  1. ARMIDEX, 1 MG, ASTRAZENECA [Suspect]
     Indication: BREAST CANCER
     Dosage: AUG-SEPT 20TH 1MG, PO QDAY, ORAL
     Route: 048

REACTIONS (1)
  - Myalgia [None]
